FAERS Safety Report 22384136 (Version 3)
Quarter: 2023Q2

REPORT INFORMATION
  Report Type: Spontaneous
  Country: US (occurrence: US)
  Receive Date: 20230530
  Receipt Date: 20230602
  Transmission Date: 20230722
  Serious: Yes (Other)
  Sender: FDA-Public Use
  Company Number: US-MLMSERVICE-20230518-4293578-1

PATIENT

DRUGS (2)
  1. FENTANYL [Suspect]
     Active Substance: FENTANYL
     Dosage: UNK
     Route: 064
  2. METHAMPHETAMINE [Concomitant]
     Active Substance: METHAMPHETAMINE
     Dosage: UNK
     Route: 064

REACTIONS (3)
  - Maternal exposure during pregnancy [Unknown]
  - Drug withdrawal syndrome neonatal [Unknown]
  - Smith-Lemli-Opitz syndrome [Unknown]
